FAERS Safety Report 6040464-3 (Version None)
Quarter: 2009Q1

REPORT INFORMATION
  Report Type: 
  Country: None (occurrence: None)
  Receive Date: 20090116
  Receipt Date: 20080312
  Transmission Date: 20090719
  Serious: No
  Sender: FDA-Public Use
  Company Number: US-BRISTOL-MYERS SQUIBB COMPANY-14112379

PATIENT
  Sex: Male
  Weight: 102 kg

DRUGS (2)
  1. ABILIFY [Suspect]
     Indication: SCHIZOAFFECTIVE DISORDER
     Dosage: INITIAL DOSE:5MG,RESTARTED AT 30MG.
  2. ABILIFY [Suspect]
     Indication: OBSESSIVE-COMPULSIVE DISORDER
     Dosage: INITIAL DOSE:5MG,RESTARTED AT 30MG.

REACTIONS (2)
  - BLOOD TESTOSTERONE DECREASED [None]
  - GYNAECOMASTIA [None]
